FAERS Safety Report 6279789-5 (Version None)
Quarter: 2009Q3

REPORT INFORMATION
  Report Type: 
  Country: None (occurrence: None)
  Receive Date: 20090723
  Receipt Date: 20090605
  Transmission Date: 20100115
  Serious: No
  Sender: FDA-Public Use
  Company Number: US-BAYER-200924167NA

PATIENT
  Age: 62 Year
  Sex: Male
  Weight: 84 kg

DRUGS (1)
  1. MAGNEVIST [Suspect]
     Indication: NUCLEAR MAGNETIC RESONANCE IMAGING
     Dosage: TOTAL DAILY DOSE: 15 ML  UNIT DOSE: 15 ML
     Route: 042
     Dates: start: 20090604, end: 20090604

REACTIONS (1)
  - BURNING SENSATION [None]
